FAERS Safety Report 22212107 (Version 10)
Quarter: 2023Q4

REPORT INFORMATION
  Report Type: Report from Study
  Country: DE (occurrence: None)
  Receive Date: 20230414
  Receipt Date: 20231002
  Transmission Date: 20240110
  Serious: Yes (Hospitalization)
  Sender: FDA-Public Use
  Company Number: DE-ROCHE-3329416

PATIENT
  Age: 60 Year
  Sex: Female

DRUGS (5)
  1. ATEZOLIZUMAB [Suspect]
     Active Substance: ATEZOLIZUMAB
     Indication: Bile duct cancer
     Dosage: DATE OF LAST ADMINISTRATION BEFORE ONSET OF EVENT 27/MAR/2023, 840 MG
     Route: 041
     Dates: start: 20221205
  2. BEVACIZUMAB [Suspect]
     Active Substance: BEVACIZUMAB
     Indication: Bile duct cancer
     Dosage: DATE OF LAST ADMINISTRATION BEFORE ONSET OF EVENT 27/MAR/2023, 07/JUN/2023 AT 580 MG, 04/JUL/2023 (D
     Route: 042
     Dates: start: 20221205
  3. LEUCOVORIN [Concomitant]
     Active Substance: LEUCOVORIN\LEUCOVORIN CALCIUM
     Indication: Bile duct cancer
     Dosage: DL RACEMIC FORM
     Route: 042
     Dates: start: 20221205
  4. FLUOROURACIL [Concomitant]
     Active Substance: FLUOROURACIL
     Indication: Bile duct cancer
     Route: 042
     Dates: start: 20221205
  5. OXALIPLATIN [Concomitant]
     Active Substance: OXALIPLATIN
     Indication: Bile duct cancer
     Route: 042
     Dates: start: 20221205

REACTIONS (3)
  - Colitis [Recovered/Resolved]
  - Diarrhoea [Recovered/Resolved]
  - Diarrhoea [Recovered/Resolved]

NARRATIVE: CASE EVENT DATE: 20230404
